FAERS Safety Report 17318484 (Version 3)
Quarter: 2020Q1

REPORT INFORMATION
  Report Type: Spontaneous
  Country: US (occurrence: US)
  Receive Date: 20200124
  Receipt Date: 20200213
  Transmission Date: 20200409
  Serious: Yes (Death)
  Sender: FDA-Public Use
  Company Number: US-ACTELION-A-NJ2020-200776

PATIENT
  Sex: Female

DRUGS (7)
  1. VITAMIN B1 [Concomitant]
     Active Substance: THIAMINE HYDROCHLORIDE
     Dosage: 50 MG, QD
  2. AQUA E [Concomitant]
  3. TRACLEER [Suspect]
     Active Substance: BOSENTAN
     Indication: PULMONARY HYPERTENSION
     Dosage: 3.75 MG, BID
     Route: 048
     Dates: start: 20191221, end: 20191230
  4. CARNITOR [Concomitant]
     Active Substance: LEVOCARNITINE
     Dosage: 6.25 MG/KG, Q6HRS
  5. SILDENAFIL. [Concomitant]
     Active Substance: SILDENAFIL
     Dosage: 3.5 MG, TID
  6. COENZYME Q10 [Concomitant]
     Active Substance: UBIDECARENONE
     Dosage: 30 MG, Q6HRS
  7. VITAMIN C [Concomitant]
     Active Substance: ASCORBIC ACID
     Dosage: 125 MG, QD

REACTIONS (2)
  - Hypertrophic cardiomyopathy [Fatal]
  - Cardiac failure [Fatal]
